FAERS Safety Report 5338649-4 (Version None)
Quarter: 2007Q2

REPORT INFORMATION
  Report Type: 
  Country: None (occurrence: None)
  Receive Date: 20070322
  Receipt Date: 20060607
  Transmission Date: 20071010
  Serious: Yes (Hospitalization)
  Sender: FDA-Public Use
  Company Number: 200611081BCC

PATIENT
  Sex: Male

DRUGS (1)
  1. ALEVE [Suspect]
     Indication: BURSITIS
     Dosage: ORAL
     Route: 048

REACTIONS (2)
  - GASTROINTESTINAL HAEMORRHAGE [None]
  - STOMACH DISCOMFORT [None]
